FAERS Safety Report 23767245 (Version 1)
Quarter: 2024Q2

REPORT INFORMATION
  Report Type: Spontaneous
  Country: CN (occurrence: CN)
  Receive Date: 20240422
  Receipt Date: 20240422
  Transmission Date: 20240715
  Serious: Yes (Hospitalization)
  Sender: FDA-Public Use
  Company Number: CN-002147023-NVSC2024CN082987

PATIENT
  Sex: Female

DRUGS (2)
  1. ENTRESTO [Suspect]
     Active Substance: SACUBITRIL\VALSARTAN
     Indication: Product used for unknown indication
     Dosage: 100 MG (ONE QUARTER TABLET OF ENTRESTO 100 MG)
     Route: 048
  2. ENTRESTO [Suspect]
     Active Substance: SACUBITRIL\VALSARTAN
     Dosage: 200 MG (HALF A TABLET OF  ENTRESTO 200 MG)
     Route: 048

REACTIONS (4)
  - Cardiac disorder [Unknown]
  - Heart rate increased [Recovering/Resolving]
  - Hypertension [Unknown]
  - Off label use [Unknown]
